FAERS Safety Report 12758770 (Version 1)
Quarter: 2016Q3

REPORT INFORMATION
  Report Type: Spontaneous
  Country: IT (occurrence: IT)
  Receive Date: 20160919
  Receipt Date: 20160919
  Transmission Date: 20161109
  Serious: Yes (Other)
  Sender: FDA-Public Use
  Company Number: IT-PFIZER INC-2016435443

PATIENT
  Age: 79 Year
  Sex: Male

DRUGS (12)
  1. NORVASC [Suspect]
     Active Substance: AMLODIPINE BESYLATE
  2. DEPALGOS [Interacting]
     Active Substance: ACETAMINOPHEN\OXYCODONE HYDROCHLORIDE
     Dosage: 10 MG, DAILY
  3. FORTRADOL [Interacting]
     Active Substance: TRAMADOL HYDROCHLORIDE
     Dosage: 20 GTT, DAILY
  4. SINVACOR [Concomitant]
     Active Substance: SIMVASTATIN
  5. GARDENALE /00023202/ [Concomitant]
     Active Substance: PHENOBARBITAL
  6. TAMSULOSIN HCL [Concomitant]
     Active Substance: TAMSULOSIN
  7. LANSOPRAZOLE. [Concomitant]
     Active Substance: LANSOPRAZOLE
  8. LIORESAL [Concomitant]
     Active Substance: BACLOFEN
  9. CARDIOASPIRIN [Concomitant]
     Active Substance: ASPIRIN
  10. NEURONTIN [Concomitant]
     Active Substance: GABAPENTIN
  11. TACHIPIRINA [Concomitant]
     Active Substance: ACETAMINOPHEN
  12. MIRTAZAPINE. [Concomitant]
     Active Substance: MIRTAZAPINE

REACTIONS (2)
  - Faecaloma [Recovering/Resolving]
  - Drug interaction [Recovering/Resolving]

NARRATIVE: CASE EVENT DATE: 20160826
